FAERS Safety Report 17447640 (Version 5)
Quarter: 2022Q2

REPORT INFORMATION
  Report Type: Spontaneous
  Country: KR (occurrence: KR)
  Receive Date: 20200221
  Receipt Date: 20220523
  Transmission Date: 20220721
  Serious: Yes (Death, Life-Threatening, Hospitalization, Other)
  Sender: FDA-Public Use
  Company Number: KR-ALEXION-18846

PATIENT
  Age: 58 Year
  Sex: Male

DRUGS (1)
  1. SOLIRIS [Suspect]
     Active Substance: ECULIZUMAB
     Indication: Atypical haemolytic uraemic syndrome
     Dosage: 900 MG, QW
     Route: 042
     Dates: start: 20200210

REACTIONS (6)
  - Multiple organ dysfunction syndrome [Fatal]
  - Infection [Fatal]
  - Septic shock [Fatal]
  - Cardiac arrest [Recovered/Resolved]
  - Device related infection [Not Recovered/Not Resolved]
  - Platelet count decreased [Not Recovered/Not Resolved]

NARRATIVE: CASE EVENT DATE: 20200210
